FAERS Safety Report 18364553 (Version 2)
Quarter: 2020Q4

REPORT INFORMATION
  Report Type: Report from Study
  Country: AR (occurrence: AR)
  Receive Date: 20201009
  Receipt Date: 20201023
  Transmission Date: 20210114
  Serious: Yes (Other)
  Sender: FDA-Public Use
  Company Number: NVSC2020AR270682

PATIENT
  Sex: Male

DRUGS (4)
  1. EXFORGE [Suspect]
     Active Substance: AMLODIPINE BESYLATE\VALSARTAN
     Indication: RENAL DISORDER
     Dosage: (1 OF 80/5) UNK, QD (STARTED 14 YEARS AGO AND STOPPED 5 YEARS AGO)
     Route: 065
  2. TAMSULOSIN [Concomitant]
     Active Substance: TAMSULOSIN
     Indication: PROPHYLAXIS
     Dosage: 4 YEARS AGO
     Route: 065
  3. EXFORGE [Suspect]
     Active Substance: AMLODIPINE BESYLATE\VALSARTAN
     Indication: HYPERTENSION
     Dosage: (1 OF 160/10) UNK, QD AT MID DAY (STARTED 5 YEARS AGO)
     Route: 065
  4. ROSUVASTATIN. [Concomitant]
     Active Substance: ROSUVASTATIN
     Indication: BLOOD CHOLESTEROL ABNORMAL
     Dosage: 7 OR 8 YEARS
     Route: 065

REACTIONS (6)
  - Central nervous system lesion [Recovered/Resolved]
  - Confusional state [Recovered/Resolved]
  - Blood pressure increased [Recovering/Resolving]
  - Product use in unapproved indication [Unknown]
  - Cerebrovascular accident [Recovered/Resolved]
  - Wrong technique in product usage process [Unknown]
